FAERS Safety Report 7705700-3 (Version None)
Quarter: 2011Q3

REPORT INFORMATION
  Report Type: 
  Country: None (occurrence: None)
  Receive Date: 20110824
  Receipt Date: 20110329
  Transmission Date: 20111222
  Serious: No
  Sender: FDA-Public Use
  Company Number: US-MYLANLABS-2011S1006717

PATIENT
  Age: 87 Year
  Sex: Female

DRUGS (4)
  1. NEXIUM [Concomitant]
  2. AMLODIPINE [Concomitant]
  3. PENTOXIFYLLINE [Suspect]
     Route: 048
  4. LIPITOR [Concomitant]

REACTIONS (2)
  - BURNING FEET SYNDROME [None]
  - PRURITUS GENERALISED [None]
